FAERS Safety Report 8961878 (Version 1)
Quarter: 2012Q4

REPORT INFORMATION
  Report Type: 
  Country: US (occurrence: US)
  Receive Date: 20121212
  Receipt Date: 20121212
  Transmission Date: 20130627
  Serious: Yes (Other)
  Sender: FDA-Public Use
  Company Number: PHHY2012US113264

PATIENT
  Age: 63 Year
  Sex: Female

DRUGS (1)
  1. CHLORPROMAZINE [Suspect]
     Indication: EYE PAIN
     Dosage: 2 ml, UNK
     Route: 056

REACTIONS (6)
  - Conjunctival hyperaemia [Recovered/Resolved]
  - Palpitations [Recovered/Resolved]
  - Eye swelling [Recovered/Resolved]
  - Conjunctival oedema [Recovered/Resolved]
  - Dizziness [Recovered/Resolved]
  - Off label use [Unknown]
